FAERS Safety Report 25414874 (Version 3)
Quarter: 2025Q4

REPORT INFORMATION
  Report Type: Report from Study
  Country: US (occurrence: None)
  Receive Date: 20250609
  Receipt Date: 20251210
  Transmission Date: 20260118
  Serious: Yes (Other)
  Sender: UCB
  Company Number: US-UCBSA-2025033810

PATIENT
  Weight: 13.3 kg

DRUGS (23)
  1. FENFLURAMINE [Suspect]
     Active Substance: FENFLURAMINE
     Indication: Severe myoclonic epilepsy of infancy
     Dosage: UNK
  2. FENFLURAMINE [Suspect]
     Active Substance: FENFLURAMINE
     Dosage: 8.8 MG/DAY
  3. FENFLURAMINE [Suspect]
     Active Substance: FENFLURAMINE
     Dosage: 2 MILLILITER, 2X/DAY (BID)
  4. FENFLURAMINE [Suspect]
     Active Substance: FENFLURAMINE
     Dosage: 0.58 MILLIGRAM PER KILOGRAM PER DAY
  5. FENFLURAMINE [Suspect]
     Active Substance: FENFLURAMINE
     Dosage: 0.61 MILLIGRAM PER KILOGRAM PER DAY
  6. FENFLURAMINE [Suspect]
     Active Substance: FENFLURAMINE
     Dosage: 0.66 MILLIGRAM PER KILOGRAM PER DAY
  7. FENFLURAMINE [Suspect]
     Active Substance: FENFLURAMINE
     Dosage: 0.56 MILLIGRAM PER KILOGRAM PER DAY
  8. FENFLURAMINE [Suspect]
     Active Substance: FENFLURAMINE
     Dosage: 0.52 MILLIGRAM PER KILOGRAM PER DAY
  9. FENFLURAMINE [Suspect]
     Active Substance: FENFLURAMINE
     Dosage: 0.6 MILLIGRAM PER KILOGRAM PER DAY
  10. FENFLURAMINE [Suspect]
     Active Substance: FENFLURAMINE
     Dosage: 0.55 MILLIGRAM PER KILOGRAM PER DAY
  11. FENFLURAMINE [Suspect]
     Active Substance: FENFLURAMINE
     Dosage: 0.57 MILLIGRAM PER KILOGRAM PER DAY
  12. FENFLURAMINE [Suspect]
     Active Substance: FENFLURAMINE
     Dosage: 0.83 MILLIGRAM PER KILOGRAM PER DAY
  13. FENFLURAMINE [Suspect]
     Active Substance: FENFLURAMINE
     Dosage: 2 MILLILITER, 2X/DAY (BID)
  14. CANNABIDIOL [Concomitant]
     Active Substance: CANNABIDIOL
     Indication: Product used for unknown indication
     Dosage: 90 MILLIGRAM, 2X/DAY (BID)
  15. CLOBAZAM [Concomitant]
     Active Substance: CLOBAZAM
     Indication: Product used for unknown indication
     Dosage: 2,5 ML IN /LM AND PM AND 1 ML IN THE AFTERNOON
  16. DIAZEPAM [Concomitant]
     Active Substance: DIAZEPAM
     Indication: Product used for unknown indication
     Dosage: 5 MILLIGRAM AS NEEDEDED
  17. MIDAZOLAM [Concomitant]
     Active Substance: MIDAZOLAM
     Indication: Seizure
     Dosage: 0.4 MILLILITER ONCE, PRN (SEIZURE GREATER THAN 3 MINS)
  18. TOPIRAMATE [Concomitant]
     Active Substance: TOPIRAMATE
     Indication: Product used for unknown indication
     Dosage: 6 MG/ML
  19. IBUPROFEN [Concomitant]
     Active Substance: IBUPROFEN
     Indication: Pain
     Dosage: 90 MILLIGRAM  Q6H
  20. CHILDRENS TYLENOL [Concomitant]
     Active Substance: ACETAMINOPHEN
     Indication: Pain
     Dosage: 134.4 MILLIGRAM, 6X/DAY
  21. ONFI [Concomitant]
     Active Substance: CLOBAZAM
     Indication: Product used for unknown indication
     Dosage: 2.5 ML B.I.D. AND 1 ML IN THE AFTERNOON
  22. TOPAMAX [Concomitant]
     Active Substance: TOPIRAMATE
     Indication: Lennox-Gastaut syndrome
     Dosage: 60 MG B.I.D.( 10 ML B.I.D.)=13 MG PER KG PER DAY DI^VIDED BJ.D.
  23. EPIDIOLEX [Concomitant]
     Active Substance: CANNABIDIOL
     Indication: Product used for unknown indication
     Dosage: 90 MG B.I.D. ( 0.9 ML B.I.D.);= 20 MG PER KG PER DAY DILADED B.I.D,

REACTIONS (4)
  - Hyperdynamic left ventricle [Unknown]
  - Vagal nerve stimulator implantation [Not Recovered/Not Resolved]
  - Tricuspid valve incompetence [Not Recovered/Not Resolved]
  - Mitral valve incompetence [Not Recovered/Not Resolved]
